FAERS Safety Report 6723958 (Version 4)
Quarter: 2015Q3

REPORT INFORMATION
  Report Type: Spontaneous
  Country: BR (occurrence: BR)
  Receive Date: 20080811
  Receipt Date: 20150907
  Transmission Date: 20151125
  Serious: Yes (Hospitalization)
  Sender: FDA-Public Use
  Company Number: BR-ASTRAZENECA-2008UW15604

PATIENT
  Age: 11296 Day
  Sex: Male
  Weight: 65 kg

DRUGS (3)
  1. SYMBICORT [Suspect]
     Active Substance: BUDESONIDE\FORMOTEROL FUMARATE DIHYDRATE
     Indication: ASTHMA
     Dosage: 160/4.5 BID
     Route: 055
     Dates: start: 200807
  2. SYMBICORT [Suspect]
     Active Substance: BUDESONIDE\FORMOTEROL FUMARATE DIHYDRATE
     Indication: ASTHMA
     Dosage: 320/9 BID
     Route: 055
     Dates: start: 20080620, end: 200807
  3. CRESTOR [Suspect]
     Active Substance: ROSUVASTATIN CALCIUM
     Indication: BLOOD CHOLESTEROL INCREASED
     Route: 048
     Dates: start: 20150827

REACTIONS (14)
  - Pneumonia [Recovering/Resolving]
  - Myalgia [Recovered/Resolved]
  - Lymphadenitis [Recovered/Resolved]
  - Nausea [Recovering/Resolving]
  - Varicella [Recovered/Resolved]
  - Malaise [Recovered/Resolved]
  - Pyrexia [Recovering/Resolving]
  - Asthenia [Recovered/Resolved]
  - Nasal congestion [Recovering/Resolving]
  - Dyspnoea [Recovering/Resolving]
  - Chills [Recovered/Resolved]
  - Abdominal pain upper [Recovering/Resolving]
  - Headache [Recovering/Resolving]
  - Syncope [Recovered/Resolved]

NARRATIVE: CASE EVENT DATE: 20080731
